FAERS Safety Report 7388454-2 (Version None)
Quarter: 2011Q2

REPORT INFORMATION
  Report Type: 
  Country: None (occurrence: None)
  Receive Date: 20110401
  Receipt Date: 20110329
  Transmission Date: 20111010
  Serious: Yes (Other)
  Sender: FDA-Public Use
  Company Number: US-PFIZER INC-2011070441

PATIENT
  Sex: Female
  Weight: 90.703 kg

DRUGS (3)
  1. ZOLOFT [Suspect]
     Indication: DEPRESSION
     Dosage: 50 MG, 1X/DAY
     Route: 048
  2. ZOLOFT [Suspect]
     Indication: POST-TRAUMATIC STRESS DISORDER
     Dosage: 25 MG, 1X/DAY
     Route: 048
     Dates: start: 20060101
  3. BETAMETHASONE [Concomitant]
     Indication: PSORIASIS
     Dosage: UNK

REACTIONS (4)
  - ANXIETY [None]
  - BLOOD CHOLESTEROL ABNORMAL [None]
  - VITAMIN D ABNORMAL [None]
  - RESTLESSNESS [None]
